FAERS Safety Report 24204417 (Version 1)
Quarter: 2024Q3

REPORT INFORMATION
  Report Type: Spontaneous
  Country: US (occurrence: US)
  Receive Date: 20240813
  Receipt Date: 20240813
  Transmission Date: 20241016
  Serious: No
  Sender: PFIZER
  Company Number: US-PFIZER INC-PV202400103731

PATIENT
  Age: 59 Year
  Sex: Female

DRUGS (3)
  1. ESTRING [Suspect]
     Active Substance: ESTRADIOL
     Dosage: 7.5 UG, DAILY
     Route: 067
     Dates: start: 20240608, end: 202407
  2. TOPAMAX [Concomitant]
     Active Substance: TOPIRAMATE
  3. REPATHA [Concomitant]
     Active Substance: EVOLOCUMAB

REACTIONS (1)
  - Migraine [Recovered/Resolved]
